FAERS Safety Report 13714288 (Version 1)
Quarter: 2017Q3

REPORT INFORMATION
  Report Type: Spontaneous
  Country: DE (occurrence: DE)
  Receive Date: 20170704
  Receipt Date: 20170704
  Transmission Date: 20171127
  Serious: Yes (Other)
  Sender: FDA-Public Use
  Company Number: DE-BIOGEN-2017BI00425899

PATIENT
  Age: 0 Day
  Sex: Male

DRUGS (1)
  1. TECFIDERA [Suspect]
     Active Substance: DIMETHYL FUMARATE
     Indication: PATERNAL EXPOSURE TIMING UNSPECIFIED
     Route: 064

REACTIONS (4)
  - Jaundice [Unknown]
  - Infection [Unknown]
  - Haemoglobin decreased [Unknown]
  - Exposure via father [Recovered/Resolved]

NARRATIVE: CASE EVENT DATE: 201706
